FAERS Safety Report 14984059 (Version 3)
Quarter: 2018Q3

REPORT INFORMATION
  Report Type: Spontaneous
  Country: CA (occurrence: CA)
  Receive Date: 20180607
  Receipt Date: 20180816
  Transmission Date: 20181010
  Serious: Yes (Other)
  Sender: FDA-Public Use
  Company Number: CA-CELLTRION INC.-2018CA020012

PATIENT

DRUGS (9)
  1. INFLECTRA [Suspect]
     Active Substance: INFLIXIMAB-DYYB
     Dosage: 5 MG/KG, CYCLIC (EVERY 0, 2,6 WEEKS, THEN EVERY 8 WEEKS)
     Route: 042
     Dates: start: 20180706
  2. ACTEMRA [Concomitant]
     Active Substance: TOCILIZUMAB
  3. HUMIRA [Concomitant]
     Active Substance: ADALIMUMAB
  4. INFLECTRA [Suspect]
     Active Substance: INFLIXIMAB-DYYB
     Dosage: 5 MG/KG, CYCLIC (EVERY 0, 2,6 WEEKS, THEN EVERY 8 WEEKS)
     Route: 042
     Dates: start: 20180605
  5. INFLECTRA [Suspect]
     Active Substance: INFLIXIMAB-DYYB
     Indication: RHEUMATOID ARTHRITIS
     Dosage: 5 MG/KG, CYCLIC (EVERY 0, 2,6 WEEKS, THEN EVERY 8 WEEKS)
     Route: 042
     Dates: start: 20180515
  6. SIMPONI [Concomitant]
     Active Substance: GOLIMUMAB
     Dosage: UNK
  7. METHOTREXATE. [Concomitant]
     Active Substance: METHOTREXATE
     Dosage: UNK
     Dates: start: 20180427
  8. FOLIC ACID. [Concomitant]
     Active Substance: FOLIC ACID
     Dosage: UNK
  9. KEVZARA [Concomitant]
     Active Substance: SARILUMAB

REACTIONS (6)
  - Arrhythmia [Unknown]
  - Hypotension [Unknown]
  - Incorrect drug administration duration [Unknown]
  - Fatigue [Unknown]
  - Blood pressure fluctuation [Unknown]
  - Product use issue [Unknown]

NARRATIVE: CASE EVENT DATE: 20180605
